FAERS Safety Report 4277022-7 (Version None)
Quarter: 2004Q1

REPORT INFORMATION
  Report Type: 
  Country: None (occurrence: None)
  Receive Date: 20040120
  Receipt Date: 20040109
  Transmission Date: 20041129
  Serious: Yes (Life-Threatening, Hospitalization)
  Sender: FDA-Public Use
  Company Number: STA-AE-04-MTX-008

PATIENT
  Age: 48 Year
  Sex: Female

DRUGS (5)
  1. METHOTREXATE [Suspect]
     Indication: RHEUMATOID ARTHRITIS
     Dosage: FROM 15 TO 20 MG MG ONCE A WEEK; ORAL
     Route: 048
     Dates: start: 20000101, end: 20030623
  2. PREDNISONE [Suspect]
     Indication: RHEUMATOID ARTHRITIS
     Dosage: FROM 7 TO 10 MG DAILY; ORAL
     Route: 048
     Dates: start: 19960101
  3. HUMIRA (ADALIMUNAB) [Suspect]
     Indication: RHEUMATOID ARTHRITIS
     Dosage: 40 MG 1 X PER 2 WK; SC
     Route: 058
     Dates: start: 20030626, end: 20030917
  4. HUMIRA [Suspect]
     Indication: RHEUMATOID ARTHRITIS
     Dosage: 40 MG 1 X PER 1 WK; SC
     Route: 058
     Dates: start: 20030918
  5. PLAQUENIL (HYDROXYCHLORQUINE PHOSPHATE) [Concomitant]

REACTIONS (5)
  - BREAST CANCER [None]
  - DISEASE PROGRESSION [None]
  - ESCHERICHIA URINARY TRACT INFECTION [None]
  - HYPERSENSITIVITY [None]
  - RHEUMATOID ARTHRITIS [None]
